FAERS Safety Report 17393576 (Version 2)
Quarter: 2020Q1

REPORT INFORMATION
  Report Type: Report from Study
  Country: US (occurrence: US)
  Receive Date: 20200208
  Receipt Date: 20200208
  Transmission Date: 20200409
  Serious: Yes (Life-Threatening, Hospitalization, Other)
  Sender: FDA-Public Use
  Company Number: NVSC2020US027726

PATIENT
  Age: 57 Year
  Sex: Female
  Weight: 87.4 kg

DRUGS (9)
  1. METOLAZONE. [Suspect]
     Active Substance: METOLAZONE
     Indication: CARDIAC FAILURE CONGESTIVE
     Dosage: 2.5 MG, QD
     Route: 048
     Dates: start: 20171201, end: 20180405
  2. LASIX [Suspect]
     Active Substance: FUROSEMIDE
     Dosage: UNK
     Route: 065
     Dates: start: 20190531, end: 20190606
  3. ENTRESTO [Suspect]
     Active Substance: SACUBITRIL\VALSARTAN
     Dosage: UNK
     Route: 048
     Dates: start: 20180920, end: 20190610
  4. ENTRESTO [Suspect]
     Active Substance: SACUBITRIL\VALSARTAN
     Indication: CARDIAC FAILURE
     Dosage: 1 DF, QD (49/51MG)
     Route: 048
     Dates: start: 20180215, end: 20180405
  5. LASIX [Suspect]
     Active Substance: FUROSEMIDE
     Indication: CARDIAC FAILURE CONGESTIVE
     Dosage: 80 MG, QD
     Route: 048
     Dates: start: 20180105
  6. LASIX [Suspect]
     Active Substance: FUROSEMIDE
     Dosage: 80 MG, QD
     Route: 048
     Dates: start: 20180418, end: 20180502
  7. ULORIC [Concomitant]
     Active Substance: FEBUXOSTAT
     Indication: GOUT
     Dosage: 80 MG, QD
     Route: 065
     Dates: start: 20160101, end: 20180501
  8. COREG [Concomitant]
     Active Substance: CARVEDILOL
     Indication: PRODUCT USED FOR UNKNOWN INDICATION
     Dosage: 50 MG, QD
     Route: 065
     Dates: start: 20180131, end: 20180405
  9. EMPAGLIFLOZIN [Suspect]
     Active Substance: EMPAGLIFLOZIN
     Indication: CARDIAC FAILURE CONGESTIVE
     Dosage: UNK
     Route: 048
     Dates: start: 20171127, end: 20190606

REACTIONS (12)
  - Nausea [Recovered/Resolved]
  - Fatigue [Recovered/Resolved]
  - Myocardial infarction [Recovered/Resolved]
  - Azotaemia [Recovering/Resolving]
  - Supraventricular tachycardia [Recovered/Resolved]
  - Renal impairment [Recovered/Resolved]
  - Azotaemia [Recovered/Resolved]
  - Lung infiltration [Not Recovered/Not Resolved]
  - Decreased appetite [Recovered/Resolved]
  - Chronic kidney disease [Recovered/Resolved]
  - Vomiting [Recovered/Resolved]
  - Chest pain [Recovered/Resolved]

NARRATIVE: CASE EVENT DATE: 20180404
